FAERS Safety Report 9302366 (Version 5)
Quarter: 2014Q1

REPORT INFORMATION
  Report Type: Spontaneous
  Country: US (occurrence: US)
  Receive Date: 20130522
  Receipt Date: 20140120
  Transmission Date: 20141002
  Serious: Yes (Hospitalization)
  Sender: FDA-Public Use
  Company Number: US-BIOGENIDEC-2013BI045170

PATIENT
  Age: 67 Year
  Sex: Female

DRUGS (5)
  1. AVONEX [Suspect]
     Indication: MULTIPLE SCLEROSIS
     Route: 030
     Dates: start: 20130425, end: 20130520
  2. AVONEX [Suspect]
     Indication: MULTIPLE SCLEROSIS
     Route: 030
     Dates: start: 20130521
  3. NOMANEX (NOS) [Concomitant]
  4. IRON [Concomitant]
     Indication: IRON BINDING CAPACITY TOTAL DECREASED
     Route: 042
  5. IRON [Concomitant]
     Indication: MALABSORPTION
     Route: 042

REACTIONS (16)
  - Chondropathy [Recovered/Resolved]
  - Arthralgia [Recovered/Resolved]
  - Blood iron decreased [Unknown]
  - Cognitive disorder [Unknown]
  - Back pain [Not Recovered/Not Resolved]
  - Nerve compression [Not Recovered/Not Resolved]
  - Immune system disorder [Unknown]
  - Dehydration [Not Recovered/Not Resolved]
  - Dermatitis bullous [Not Recovered/Not Resolved]
  - Influenza [Recovered/Resolved]
  - Chills [Recovered/Resolved]
  - Pyrexia [Recovered/Resolved]
  - Nausea [Recovered/Resolved]
  - Decreased appetite [Not Recovered/Not Resolved]
  - Pain [Recovered/Resolved]
  - Dyspnoea [Not Recovered/Not Resolved]
